FAERS Safety Report 19271951 (Version 2)
Quarter: 2024Q1

REPORT INFORMATION
  Report Type: Spontaneous
  Country: US (occurrence: US)
  Receive Date: 20210519
  Receipt Date: 20240201
  Transmission Date: 20240409
  Serious: No
  Sender: FDA-Public Use
  Company Number: US-NOVEN PHARMACEUTICALS, INC.-2021US001163

PATIENT
  Age: 7 Year
  Sex: Male
  Weight: 29.932 kg

DRUGS (3)
  1. DAYTRANA [Suspect]
     Active Substance: METHYLPHENIDATE
     Indication: Attention deficit hyperactivity disorder
     Dosage: 15 MG/9 HOURS, UNK
     Route: 062
  2. DAYTRANA [Suspect]
     Active Substance: METHYLPHENIDATE
     Dosage: 20 MG/9 HOURS, UNK
     Route: 062
  3. DAYTRANA [Suspect]
     Active Substance: METHYLPHENIDATE
     Dosage: 30 MG/9 HOURS, UNK
     Route: 062
     Dates: start: 2018

REACTIONS (9)
  - Feeling abnormal [Unknown]
  - Tachycardia [Not Recovered/Not Resolved]
  - Adhesive tape use [Not Recovered/Not Resolved]
  - Product administered at inappropriate site [Recovered/Resolved]
  - Product administration error [Not Recovered/Not Resolved]
  - Device breakage [Not Recovered/Not Resolved]
  - Device adhesion issue [Not Recovered/Not Resolved]
  - Product adhesion issue [Not Recovered/Not Resolved]
  - Device physical property issue [Not Recovered/Not Resolved]

NARRATIVE: CASE EVENT DATE: 20210201
